FAERS Safety Report 8957558 (Version 1)
Quarter: 2012Q4

REPORT INFORMATION
  Report Type: 
  Country: US (occurrence: US)
  Receive Date: 20121210
  Receipt Date: 20121210
  Transmission Date: 20130627
  Serious: Yes (Death, Hospitalization)
  Sender: FDA-Public Use
  Company Number: US-PFIZER INC-2012304987

PATIENT
  Age: 75 Year
  Sex: Female

DRUGS (1)
  1. REVATIO [Suspect]
     Indication: PULMONARY HYPERTENSION
     Dosage: 20 mg, TID
     Dates: start: 20121102

REACTIONS (3)
  - Pulmonary hypertension [Fatal]
  - Organ failure [Fatal]
  - Infection [Unknown]
